FAERS Safety Report 9111093 (Version 1)
Quarter: 2013Q1

REPORT INFORMATION
  Report Type: Spontaneous
  Country: US (occurrence: US)
  Receive Date: 20130219
  Receipt Date: 20130219
  Transmission Date: 20140127
  Serious: No
  Sender: FDA-Public Use
  Company Number: US-BRISTOL-MYERS SQUIBB COMPANY-17081530

PATIENT
  Age: 58 Year
  Sex: Female
  Weight: 98.41 kg

DRUGS (15)
  1. ABATACEPT SUBQ INJECTION 125MG/ML [Suspect]
     Indication: RHEUMATOID ARTHRITIS
     Dosage: LAST INJECTION: 24OCT2012,7NOV12?1DF=125MG/ML
     Route: 058
     Dates: start: 201210
  2. ARAVA [Concomitant]
     Dosage: TAKEN 2 TABLET(20MG)
     Route: 048
  3. PRILOSEC [Concomitant]
     Dosage: TAKEN 1 CAPSULE(20MG)BY ORAL ROUTE TWICE A DAY BEFORE MEALS.
     Route: 048
  4. VOLTAREN [Concomitant]
     Dosage: 1DOSAGE FORM-1%,APPLY(2G)BY TROPICAL ROUTE 4TIMES EVERY DAY TO AFFECTED AREA(S).
     Route: 061
  5. FLEXERIL [Concomitant]
     Indication: HEADACHE
     Dosage: TAKEN 1 TABLET.
     Route: 048
  6. ETODOLAC [Concomitant]
     Dosage: TAKEN 1 CAPSULE, WITH FOOD.
     Route: 048
  7. VITAMIN D2 [Concomitant]
     Dosage: 1 DOSAGE FORM-50,000 UNITS, CAPSULE.
     Route: 048
  8. BIOTIN [Concomitant]
     Dosage: 5000MG 1 CAP TID.
  9. MENEST [Concomitant]
     Dosage: TABALET.
     Route: 048
  10. VITAMIN C [Concomitant]
     Dosage: 2-3 DAILY.
  11. POTASSIUM CHLORIDE [Concomitant]
     Dosage: 3TAB TID.
  12. FOLIC ACID [Concomitant]
     Dosage: TABLET.
     Route: 048
  13. ASPIRIN [Concomitant]
     Dosage: CHEW 1 TABLET.
     Route: 048
  14. SALMON OIL [Concomitant]
     Dosage: 1 DF = 1000MG-200MG;2CAP TID.
  15. GLIPIZIDE [Concomitant]
     Dosage: GLIPIZIDE ER

REACTIONS (1)
  - Hypersensitivity [Unknown]
